FAERS Safety Report 6201216-4 (Version None)
Quarter: 2009Q2

REPORT INFORMATION
  Report Type: 
  Country: None (occurrence: None)
  Receive Date: 20090526
  Receipt Date: 20090514
  Transmission Date: 20091009
  Serious: Yes (Other)
  Sender: FDA-Public Use
  Company Number: AU-JNJFOC-20090503784

PATIENT
  Sex: Female
  Weight: 3.26 kg

DRUGS (4)
  1. TOPAMAX [Suspect]
     Indication: DRUG EXPOSURE DURING PREGNANCY
  2. TOPAMAX [Suspect]
     Indication: DRUG EXPOSURE VIA BREAST MILK
  3. FOLIC ACID [Concomitant]
     Indication: DRUG EXPOSURE DURING PREGNANCY
  4. MULTI-VITAMINS [Concomitant]
     Indication: DRUG EXPOSURE DURING PREGNANCY

REACTIONS (2)
  - APGAR SCORE LOW [None]
  - DRUG EXPOSURE VIA BREAST MILK [None]
